FAERS Safety Report 18444291 (Version 1)
Quarter: 2020Q4

REPORT INFORMATION
  Report Type: Spontaneous
  Country: US (occurrence: US)
  Receive Date: 20201030
  Receipt Date: 20201030
  Transmission Date: 20210114
  Serious: Yes (Hospitalization)
  Sender: FDA-Public Use
  Company Number: US-STRIDES ARCOLAB LIMITED-2020SP013132

PATIENT
  Age: 43 Year
  Sex: Male

DRUGS (5)
  1. AZITHROMYCIN ANHYDROUS. [Suspect]
     Active Substance: AZITHROMYCIN ANHYDROUS
     Dosage: 200 MILLIGRAM, UNKNOWN (DAYS 2 TO 5)
     Route: 048
  2. ALBUTEROL [SALBUTAMOL] [Concomitant]
     Active Substance: ALBUTEROL
     Indication: PRODUCT USED FOR UNKNOWN INDICATION
     Dosage: UNK
     Route: 065
  3. BENZONATATE. [Suspect]
     Active Substance: BENZONATATE
     Indication: COUGH
     Dosage: UNK, PRN
     Route: 065
  4. AZITHROMYCIN ANHYDROUS. [Suspect]
     Active Substance: AZITHROMYCIN ANHYDROUS
     Indication: PRODUCT USED FOR UNKNOWN INDICATION
     Dosage: 500 MILLIGRAM, UNKNOWN (DAY 1)
     Route: 048
  5. METHOCARBAMOL. [Suspect]
     Active Substance: METHOCARBAMOL
     Indication: BACK PAIN
     Dosage: 750 MILLIGRAM, QID
     Route: 065

REACTIONS (16)
  - Muscle rigidity [Recovered/Resolved]
  - Posture abnormal [Recovered/Resolved]
  - Psychotic disorder [Unknown]
  - Hallucination, auditory [Recovered/Resolved]
  - Hyperhidrosis [Recovered/Resolved]
  - Asthenia [Recovered/Resolved]
  - Insomnia [Recovered/Resolved]
  - Confusional state [Unknown]
  - Catatonia [Recovered/Resolved]
  - Abnormal behaviour [Recovered/Resolved]
  - Lack of spontaneous speech [Recovered/Resolved]
  - Mental status changes [Recovered/Resolved]
  - Anhedonia [Recovered/Resolved]
  - Depressed mood [Not Recovered/Not Resolved]
  - Tremor [Recovered/Resolved]
  - Psychomotor retardation [Unknown]
